FAERS Safety Report 6354199-0 (Version None)
Quarter: 2009Q3

REPORT INFORMATION
  Report Type: 
  Country: None (occurrence: None)
  Receive Date: 20090914
  Receipt Date: 20090901
  Transmission Date: 20100115
  Serious: Yes (Other)
  Sender: FDA-Public Use
  Company Number: PHHY2009BR37601

PATIENT
  Age: 77 Year
  Sex: Female
  Weight: 90 kg

DRUGS (2)
  1. DICLOFENAC SODIUM [Suspect]
     Indication: ARTHRALGIA
     Dosage: 5 CAPSULES 5 DAYS
     Route: 048
  2. DICLOFENAC SODIUM [Suspect]
     Dosage: 2 CAPSULES
     Route: 048
     Dates: start: 20090831

REACTIONS (5)
  - ABASIA [None]
  - ARTHRALGIA [None]
  - ERYTHEMA [None]
  - OEDEMA PERIPHERAL [None]
  - WEIGHT INCREASED [None]
